FAERS Safety Report 5821112-1 (Version None)
Quarter: 2008Q3

REPORT INFORMATION
  Report Type: 
  Country: None (occurrence: None)
  Receive Date: 20080724
  Receipt Date: 20080716
  Transmission Date: 20090109
  Serious: Yes (Hospitalization)
  Sender: FDA-Public Use
  Company Number: IL-WATSON-2008-04295

PATIENT
  Age: 20 Year
  Sex: Female

DRUGS (2)
  1. PROGESTERONE IN OIL INJ [Suspect]
     Indication: AMENORRHOEA
     Dosage: 100 MG, BID X 8 DAYS
     Route: 048
  2. DONOR LYMPHOCYTE INFUSIONS [Suspect]
     Indication: ACUTE MYELOID LEUKAEMIA (IN REMISSION)
     Dosage: 4 INCREMENTAL DOSES
     Route: 042

REACTIONS (1)
  - GRAFT VERSUS HOST DISEASE [None]
